FAERS Safety Report 16673387 (Version 2)
Quarter: 2019Q3

REPORT INFORMATION
  Report Type: Spontaneous
  Country: US (occurrence: US)
  Receive Date: 20190806
  Receipt Date: 20190809
  Transmission Date: 20191004
  Serious: No
  Sender: FDA-Public Use
  Company Number: US-PFIZER INC-2019335858

PATIENT
  Age: 62 Year
  Weight: 102.49 kg

DRUGS (5)
  1. HUMIRA [Suspect]
     Active Substance: ADALIMUMAB
     Dosage: 40 MG, UNK (1 IN 2 WEEK)
     Route: 058
     Dates: start: 201904, end: 2019
  2. LYRICA [Suspect]
     Active Substance: PREGABALIN
     Indication: FIBROMYALGIA
     Dosage: 450 MG, DAILY (150MG, 3 IN 1 DAY)
     Route: 048
     Dates: end: 20190712
  3. LYRICA [Suspect]
     Active Substance: PREGABALIN
     Indication: SPINAL STENOSIS
     Dosage: 450 MG, DAILY (150MG, 3 IN 1 DAY)
     Route: 048
     Dates: start: 20190712
  4. LYRICA [Suspect]
     Active Substance: PREGABALIN
     Indication: RHEUMATOID ARTHRITIS
     Dosage: 450 MG, DAILY (150MG, 3 IN 1 DAY)
     Route: 048
  5. LYRICA [Suspect]
     Active Substance: PREGABALIN
     Indication: NEUROPATHY PERIPHERAL

REACTIONS (9)
  - Grunting [Unknown]
  - Mobility decreased [Unknown]
  - Pruritus [Recovered/Resolved]
  - Arthralgia [Unknown]
  - Malaise [Recovering/Resolving]
  - Headache [Unknown]
  - Back pain [Unknown]
  - Nausea [Recovered/Resolved]
  - Weight decreased [Unknown]

NARRATIVE: CASE EVENT DATE: 2019
